FAERS Safety Report 23633064 (Version 2)
Quarter: 2024Q2

REPORT INFORMATION
  Report Type: Spontaneous
  Country: AU (occurrence: AU)
  Receive Date: 20240314
  Receipt Date: 20240521
  Transmission Date: 20240716
  Serious: Yes (Other)
  Sender: FDA-Public Use
  Company Number: AU-WOODWARD-2024-AU-000157

PATIENT
  Age: 49 Year
  Sex: Male

DRUGS (10)
  1. RABEPRAZOLE SODIUM [Suspect]
     Active Substance: RABEPRAZOLE SODIUM
     Indication: Product used for unknown indication
     Dosage: 20.0 MILLIGRAM(S) (20 MILLIGRAM(S), 1 IN 1 DAY)
     Route: 048
  2. CLOZAPINE [Suspect]
     Active Substance: CLOZAPINE
     Dosage: DOSES AS HIGH AS 800MG; DID NOT BELIEVE TO HAVE BEEN USEFUL; INTERMITTENT NON-COMPLIANCE
     Dates: start: 2006
  3. ATORVASTATIN CALCIUM [Suspect]
     Active Substance: ATORVASTATIN CALCIUM
     Dosage: 40.0 MILLIGRAM(S) (40 MILLIGRAM(S), 1 IN 1 DAY)
     Route: 048
  4. CITALOPRAM HYDROBROMIDE [Suspect]
     Active Substance: CITALOPRAM HYDROBROMIDE
     Dosage: 20.0 MILLIGRAM(S) (20 MILLIGRAM(S), 1 IN 1 DAY)
     Route: 048
  5. DIAZEPAM [Suspect]
     Active Substance: DIAZEPAM
     Dosage: 5.0 MILLIGRAM(S) (5 MILLIGRAM(S), 1 IN 1 DAY); MIDDAY PRN
     Route: 048
  6. PROPRANOLOL HYDROCHLORIDE [Suspect]
     Active Substance: PROPRANOLOL HYDROCHLORIDE
     Dosage: 30.0 MILLIGRAM(S) (10 MILLIGRAM(S), 1 IN 8 HOUR); TDS PRN
  7. THIAMINE [Suspect]
     Active Substance: THIAMINE
     Dosage: 300.0 MILLIGRAM(S) (300 MILLIGRAM(S), 1 IN 1 DAY)
  8. CARIPRAZINE [Suspect]
     Active Substance: CARIPRAZINE
     Dosage: 1.5 MILLIGRAM(S) (1.5 MILLIGRAM(S), 1 IN 1 DAY)
     Dates: start: 20221223
  9. NICOTINE [Suspect]
     Active Substance: NICOTINE
     Dosage: (1 IN 1 DAY); 15 SPRAYS
  10. ATROPINE [Suspect]
     Active Substance: ATROPINE\ATROPINE SULFATE
     Dosage: 0.1% DROPS (DOSE AND FREQUENCY UNKNOWN)

REACTIONS (14)
  - Blood glucose increased [Unknown]
  - Diarrhoea [Recovered/Resolved]
  - Blood urea abnormal [Unknown]
  - Blood calcium abnormal [Unknown]
  - Sleep apnoea syndrome [Unknown]
  - Treatment noncompliance [Unknown]
  - Electrocardiogram ST-T segment abnormal [Unknown]
  - Electrocardiogram QT prolonged [Unknown]
  - QRS axis abnormal [Unknown]
  - Left ventricular hypertrophy [Unknown]
  - Blood prolactin abnormal [Unknown]
  - Liver function test abnormal [Unknown]
  - Orthostatic hypotension [Recovering/Resolving]
  - Vitamin D abnormal [Unknown]
